FAERS Safety Report 10978680 (Version 1)
Quarter: 2015Q1

REPORT INFORMATION
  Report Type: Spontaneous
  Country: FR (occurrence: None)
  Receive Date: 20150331
  Receipt Date: 20150331
  Transmission Date: 20150721
  Serious: Yes (Hospitalization)
  Sender: FDA-Public Use
  Company Number: FR-2015VAL000232

PATIENT

DRUGS (1)
  1. BROMOCRIPTINE MESYLATE (BROMOCRIPTINE MESYLATE) UNKNOWN [Suspect]
     Active Substance: BROMOCRIPTINE MESYLATE
     Indication: MATERNAL EXPOSURE DURING PREGNANCY

REACTIONS (2)
  - Foetal exposure during pregnancy [None]
  - Premature baby [None]
